FAERS Safety Report 5819469-0 (Version None)
Quarter: 2008Q3

REPORT INFORMATION
  Report Type: 
  Country: None (occurrence: None)
  Receive Date: 20080723
  Receipt Date: 20080715
  Transmission Date: 20090109
  Serious: Yes (Hospitalization)
  Sender: FDA-Public Use
  Company Number: US-JNJFOC-20080704904

PATIENT
  Sex: Female
  Weight: 86.18 kg

DRUGS (14)
  1. LEVAQUIN [Suspect]
     Indication: BRONCHITIS
     Route: 048
  2. LEVOTHYROXINE SODIUM [Concomitant]
     Indication: HYPOTHYROIDISM
     Route: 048
  3. DILTIAZEM HCL [Concomitant]
     Indication: ATRIAL FIBRILLATION
     Route: 048
  4. METFORMIN [Concomitant]
     Indication: DIABETES MELLITUS
     Dosage: TWO IN THE MORNING AND ONE IN THE EVENING.
     Route: 048
  5. GLIMEPIRIDE [Concomitant]
     Indication: DIABETES MELLITUS
     Route: 048
  6. PROZAC [Concomitant]
     Route: 048
  7. PRILOSEC [Concomitant]
     Indication: STOMACH DISCOMFORT
     Route: 048
  8. LANOXIN [Concomitant]
     Route: 048
  9. COUMADIN [Concomitant]
     Route: 048
  10. ALLEGRA-D [Concomitant]
     Route: 048
  11. VYTORIN [Concomitant]
     Dosage: DOSE: 10/40
     Route: 048
  12. JANUVIA [Concomitant]
     Indication: DIABETES MELLITUS
     Route: 048
  13. LORAZEPAM [Concomitant]
     Route: 048
  14. ALBUTEROL [Concomitant]
     Dosage: AS NEEDED
     Route: 055

REACTIONS (1)
  - BLOOD POTASSIUM DECREASED [None]
